FAERS Safety Report 8069216 (Version 2)
Quarter: 2012Q4

REPORT INFORMATION
  Report Type: Report from Study
  Country: NL (occurrence: NL)
  Receive Date: 20110804
  Receipt Date: 20121106
  Transmission Date: 20130627
  Serious: Yes (Hospitalization)
  Sender: FDA-Public Use
  Company Number: NL-GLAXOSMITHKLINE-B0712774B

PATIENT
  Age: 67 Year
  Sex: Male
  Weight: 84 kg

DRUGS (2)
  1. PAZOPANIB [Suspect]
     Indication: MALIGNANT NEOPLASM PROGRESSION
     Route: 048
     Dates: start: 20110329
  2. HOLOXAN [Suspect]
     Indication: MALIGNANT NEOPLASM PROGRESSION
     Dates: start: 20110405, end: 20110526

REACTIONS (3)
  - Hypokalaemia [Recovered/Resolved]
  - Febrile neutropenia [Recovered/Resolved]
  - Blood creatinine increased [Recovered/Resolved]
